FAERS Safety Report 6191848-4 (Version None)
Quarter: 2009Q2

REPORT INFORMATION
  Report Type: 
  Country: None (occurrence: None)
  Receive Date: 20090515
  Receipt Date: 20090319
  Transmission Date: 20091009
  Serious: No
  Sender: FDA-Public Use
  Company Number: US-BAYER-200910883BCC

PATIENT
  Age: 78 Year
  Sex: Female
  Weight: 77 kg

DRUGS (21)
  1. ALEVE [Suspect]
     Indication: ANALGESIA
     Dosage: TOTAL DAILY DOSE: 440 MG  UNIT DOSE: 220 MG
     Route: 048
     Dates: start: 20090318
  2. METFORMIN HCL [Concomitant]
     Indication: DRUG USE FOR UNKNOWN INDICATION
  3. LISINOPRIL [Concomitant]
     Indication: DRUG USE FOR UNKNOWN INDICATION
  4. DOXEPIN HCL [Concomitant]
     Indication: DRUG USE FOR UNKNOWN INDICATION
  5. NORTRIPTYLINE HCL [Concomitant]
     Indication: DRUG USE FOR UNKNOWN INDICATION
  6. POTASSIUM CHLORIDE [Concomitant]
     Indication: DRUG USE FOR UNKNOWN INDICATION
  7. PRENATAL VITAMIN (SPRING VALLEY) [Concomitant]
     Indication: DRUG USE FOR UNKNOWN INDICATION
  8. PEROXIN [Concomitant]
     Indication: DRUG USE FOR UNKNOWN INDICATION
  9. FISH OIL (NATURES BOUNTY) [Concomitant]
     Indication: DRUG USE FOR UNKNOWN INDICATION
  10. HYDROXYZINE HCL [Concomitant]
     Indication: DRUG USE FOR UNKNOWN INDICATION
  11. HYLANDS LEG CRAMPS PILLS [Concomitant]
     Indication: DRUG USE FOR UNKNOWN INDICATION
  12. QUININE [Concomitant]
     Indication: DRUG USE FOR UNKNOWN INDICATION
  13. VITAMIN B6 (MAJOR VIBRANT HEALTH) [Concomitant]
     Indication: DRUG USE FOR UNKNOWN INDICATION
  14. OXYCONTIN [Concomitant]
     Indication: DRUG USE FOR UNKNOWN INDICATION
  15. SPIRONOLACTONE [Concomitant]
     Indication: DRUG USE FOR UNKNOWN INDICATION
  16. PRILOSEC [Concomitant]
     Indication: DRUG USE FOR UNKNOWN INDICATION
  17. AMBIEN [Concomitant]
     Indication: DRUG USE FOR UNKNOWN INDICATION
  18. SOMAS [Concomitant]
     Indication: DRUG USE FOR UNKNOWN INDICATION
     Dosage: TIMES 2
  19. PREDNISONE [Concomitant]
     Indication: DRUG USE FOR UNKNOWN INDICATION
  20. PRAVASTATIN [Concomitant]
     Indication: DRUG USE FOR UNKNOWN INDICATION
  21. IBUPROFEN [Concomitant]
     Indication: DRUG USE FOR UNKNOWN INDICATION

REACTIONS (1)
  - INSOMNIA [None]
